FAERS Safety Report 18592546 (Version 16)
Quarter: 2021Q2

REPORT INFORMATION
  Report Type: Report from Study
  Country: US (occurrence: US)
  Receive Date: 20201208
  Receipt Date: 20210429
  Transmission Date: 20210717
  Serious: Yes (Death, Life-Threatening, Hospitalization)
  Sender: FDA-Public Use
  Company Number: US-PFIZER INC-2020483243

PATIENT
  Age: 64 Year
  Sex: Male

DRUGS (28)
  1. ZESTRIL [Concomitant]
     Active Substance: LISINOPRIL
     Dosage: UNK
     Dates: start: 20201002
  2. COMPAZINE [Concomitant]
     Active Substance: PROCHLORPERAZINE MALEATE
     Dosage: UNK
     Dates: start: 20200918
  3. IMODIUM [Concomitant]
     Active Substance: LOPERAMIDE HYDROCHLORIDE
     Dosage: UNK
     Dates: start: 20200918
  4. POTASSIUM CHLORIDE. [Concomitant]
     Active Substance: POTASSIUM CHLORIDE
     Dosage: UNK
     Dates: start: 20210131, end: 20210131
  5. MEKTOVI [Suspect]
     Active Substance: BINIMETINIB
     Dosage: 15 MG, 1X/DAY (C3D1)
     Route: 048
     Dates: start: 20201112, end: 20201127
  6. CELEBREX [Concomitant]
     Active Substance: CELECOXIB
     Dosage: UNK
     Dates: start: 20200629
  7. MEKTOVI [Suspect]
     Active Substance: BINIMETINIB
     Dosage: 15 MG, 1X/DAY (C1D15)
     Route: 048
     Dates: start: 20201002
  8. IDE 196 [Suspect]
     Active Substance: DAROVASERTIB
     Indication: UVEAL MELANOMA
     Dosage: 300 MG, 1X/DAY (C1D1)
     Route: 048
     Dates: start: 20200918
  9. IDE 196 [Suspect]
     Active Substance: DAROVASERTIB
     Dosage: 300 MG, 1X/DAY (C1D15)
     Route: 048
     Dates: start: 20201002
  10. IDE 196 [Suspect]
     Active Substance: DAROVASERTIB
     Dosage: UNK
     Route: 065
  11. ATIVAN [Concomitant]
     Active Substance: LORAZEPAM
     Dosage: UNK
     Dates: start: 20201212, end: 20201213
  12. FLOMAX [Concomitant]
     Active Substance: TAMSULOSIN HYDROCHLORIDE
     Dosage: UNK
     Dates: start: 20201204
  13. MEKTOVI [Suspect]
     Active Substance: BINIMETINIB
     Dosage: 15 MG, 1X/DAY (C2D1)
     Route: 048
     Dates: start: 20201015
  14. IDE 196 [Suspect]
     Active Substance: DAROVASERTIB
     Dosage: 300 MG, 1X/DAY (C2D1)
     Route: 048
     Dates: start: 20201015
  15. IDE 196 [Suspect]
     Active Substance: DAROVASERTIB
     Dosage: 300 MG, 1X/DAY (C3D1)
     Route: 065
     Dates: start: 20201112, end: 20201127
  16. PRISTIQ EXTENDED?RELEASE [Concomitant]
     Active Substance: DESVENLAFAXINE SUCCINATE
     Dosage: UNK
     Dates: start: 20200804
  17. DESOWEN [Concomitant]
     Active Substance: DESONIDE
     Dosage: UNK
     Dates: start: 20191002
  18. MEKTOVI [Suspect]
     Active Substance: BINIMETINIB
     Indication: UVEAL MELANOMA
     Dosage: 15 MG, 1X/DAY (C1D1)
     Route: 048
     Dates: start: 20200918
  19. ATARAX [Concomitant]
     Active Substance: HYDROXYZINE HYDROCHLORIDE
     Dosage: UNK
     Dates: start: 20191007
  20. LASIX [Concomitant]
     Active Substance: FUROSEMIDE
     Dosage: UNK
     Dates: start: 20201112
  21. ALDACTONE [Concomitant]
     Active Substance: SPIRONOLACTONE
     Dosage: UNK
     Dates: start: 20201112
  22. TEMOVATE [Concomitant]
     Active Substance: CLOBETASOL PROPIONATE
     Dosage: UNK
     Dates: start: 20200227
  23. KENALOG [Concomitant]
     Active Substance: TRIAMCINOLONE ACETONIDE
     Dosage: UNK
     Dates: start: 20200213
  24. VIBRAMYCIN [Concomitant]
     Active Substance: DOXYCYCLINE
     Dosage: UNK
     Dates: start: 20201015, end: 20201130
  25. ZOFRAN [Concomitant]
     Active Substance: ONDANSETRON HYDROCHLORIDE
     Dosage: UNK
     Dates: start: 20201112
  26. FLEXERIL [Concomitant]
     Active Substance: CYCLOBENZAPRINE HYDROCHLORIDE
     Dosage: UNK
     Dates: start: 20200831
  27. TOPROL XL [Concomitant]
     Active Substance: METOPROLOL SUCCINATE
     Dosage: UNK
     Dates: start: 20200731
  28. ZETIA [Concomitant]
     Active Substance: EZETIMIBE
     Dosage: UNK
     Dates: start: 20201212

REACTIONS (1)
  - Hepatitis cholestatic [Not Recovered/Not Resolved]

NARRATIVE: CASE EVENT DATE: 20201128
